FAERS Safety Report 19817398 (Version 1)
Quarter: 2021Q3

REPORT INFORMATION
  Report Type: Spontaneous
  Country: US (occurrence: US)
  Receive Date: 20210910
  Receipt Date: 20210910
  Transmission Date: 20211014
  Serious: Yes (Other)
  Sender: FDA-Public Use
  Company Number: US-HQ SPECIALTY-US-2021INT000165

PATIENT

DRUGS (2)
  1. RADIOTHERAPY [Suspect]
     Active Substance: RADIATION THERAPY
     Indication: OROPHARYNGEAL SQUAMOUS CELL CARCINOMA
     Dosage: 56 GY WAS DELIVERED IN 28 FRACTIONS
     Route: 065
  2. CISPLATIN. [Suspect]
     Active Substance: CISPLATIN
     Indication: OROPHARYNGEAL SQUAMOUS CELL CARCINOMA
     Dosage: 40 MG/M2, EVERY WEEK FOR 6 WEEKS

REACTIONS (1)
  - Post procedural haemorrhage [Unknown]
